FAERS Safety Report 10030766 (Version 2)
Quarter: 2014Q1

REPORT INFORMATION
  Report Type: Spontaneous
  Country: US (occurrence: US)
  Receive Date: 20140323
  Receipt Date: 20140323
  Transmission Date: 20141002
  Serious: No
  Sender: FDA-Public Use
  Company Number: US-ALLERGAN-1401778US

PATIENT
  Age: 69 Year
  Sex: Female

DRUGS (4)
  1. LATISSE 0.03% [Suspect]
     Indication: GROWTH OF EYELASHES
     Dosage: 2 GTT, QHS
     Route: 061
  2. NEOCUTIS EYE CREAM [Suspect]
     Indication: THERAPEUTIC SKIN CARE TOPICAL
     Dosage: UNK
     Route: 061
  3. LIPITOR [Concomitant]
     Indication: BLOOD CHOLESTEROL INCREASED
     Dosage: UNK
  4. TRETINOIN [Concomitant]
     Indication: ROSACEA
     Dosage: UNK

REACTIONS (3)
  - Drug dose omission [Unknown]
  - Trichiasis [Recovering/Resolving]
  - Hair growth abnormal [Recovering/Resolving]
